FAERS Safety Report 4880364-5 (Version None)
Quarter: 2006Q1

REPORT INFORMATION
  Report Type: 
  Country: None (occurrence: None)
  Receive Date: 20060111
  Receipt Date: 20051228
  Transmission Date: 20060701
  Serious: Yes (Other)
  Sender: FDA-Public Use
  Company Number: 200513129BWH

PATIENT
  Age: 68 Year
  Sex: Male
  Weight: 79.6 kg

DRUGS (5)
  1. SORAFENIB [Suspect]
     Indication: METASTATIC RENAL CELL CARCINOMA
     Dosage: 400 MG, BID, ORAL
     Route: 048
     Dates: start: 20050629
  2. FLONASE [Concomitant]
  3. DYAZIDE [Concomitant]
  4. RABEPRAZOLE SODIUM [Concomitant]
  5. HYTRIN [Concomitant]

REACTIONS (1)
  - SQUAMOUS CELL CARCINOMA OF SKIN [None]
